FAERS Safety Report 5170731-7 (Version None)
Quarter: 2006Q4

REPORT INFORMATION
  Report Type: 
  Country: None (occurrence: None)
  Receive Date: 20060919
  Receipt Date: 20060606
  Transmission Date: 20070319
  Serious: No
  Sender: FDA-Public Use
  Company Number: 2006US001246

PATIENT
  Age: 77 Year
  Sex: Female

DRUGS (1)
  1. VESICARE [Suspect]

REACTIONS (3)
  - CONSTIPATION [None]
  - DIZZINESS [None]
  - STOMACH DISCOMFORT [None]
